FAERS Safety Report 9892860 (Version 1)
Quarter: 2014Q1

REPORT INFORMATION
  Report Type: Report from Study
  Country: US (occurrence: US)
  Receive Date: 20140213
  Receipt Date: 20140213
  Transmission Date: 20141002
  Serious: Yes (Death)
  Sender: FDA-Public Use
  Company Number: US-ROCHE-1323986

PATIENT
  Sex: Male

DRUGS (16)
  1. AVASTIN [Suspect]
     Indication: PANCREATIC CARCINOMA
     Route: 042
     Dates: start: 20111219
  2. AVASTIN [Suspect]
     Indication: METASTASES TO LIVER
     Route: 042
     Dates: start: 20120103
  3. AVASTIN [Suspect]
     Route: 042
     Dates: start: 20120213
  4. AVASTIN [Suspect]
     Route: 042
     Dates: start: 20120130
  5. 5-FU [Concomitant]
     Route: 042
  6. 5-FU [Concomitant]
     Dosage: CIV X 48 HOURS
     Route: 065
  7. LEUCOVORIN [Concomitant]
     Route: 040
     Dates: start: 20120103
  8. ABRAXANE [Concomitant]
     Route: 065
     Dates: start: 20111219
  9. GEMZAR [Concomitant]
     Route: 065
     Dates: start: 20111219
  10. ELOXATIN [Concomitant]
     Route: 065
     Dates: start: 20111219
  11. ALOXI [Concomitant]
     Route: 065
  12. DEXAMETHASONE [Concomitant]
     Route: 065
  13. LORAZEPAM [Concomitant]
     Route: 065
  14. ZANTAC [Concomitant]
     Route: 065
  15. KYTRIL [Concomitant]
     Route: 065
  16. ZOFRAN [Concomitant]

REACTIONS (1)
  - Death [Fatal]
